FAERS Safety Report 21051728 (Version 1)
Quarter: 2022Q3

REPORT INFORMATION
  Report Type: Spontaneous
  Country: BR (occurrence: BR)
  Receive Date: 20220707
  Receipt Date: 20220707
  Transmission Date: 20221027
  Serious: Yes (Other)
  Sender: FDA-Public Use
  Company Number: BR-SUN PHARMACEUTICAL INDUSTRIES LTD-2022R1-341396

PATIENT
  Age: 20 Year
  Sex: Female

DRUGS (4)
  1. DOXORUBICIN [Suspect]
     Active Substance: DOXORUBICIN
     Indication: Lymphoma
     Dosage: 2 CYCLES
     Route: 065
  2. VINCRISTINE [Suspect]
     Active Substance: VINCRISTINE
     Indication: Lymphoma
     Dosage: 2 CYCLES
     Route: 065
  3. CYCLOPHOSPHAMIDE [Suspect]
     Active Substance: CYCLOPHOSPHAMIDE
     Indication: Lymphoma
     Dosage: 2 CYCLES
     Route: 065
  4. ETOPOSIDE [Suspect]
     Active Substance: ETOPOSIDE
     Indication: Lymphoma
     Dosage: 2 CYCLES
     Route: 065

REACTIONS (15)
  - Drug ineffective [Unknown]
  - Superior vena cava syndrome [Unknown]
  - Acute kidney injury [Unknown]
  - Arrhythmia [Unknown]
  - Pericardial effusion [Unknown]
  - Sepsis [Unknown]
  - Septic shock [Unknown]
  - Infection [Unknown]
  - Motor dysfunction [Not Recovered/Not Resolved]
  - Muscle contracture [Not Recovered/Not Resolved]
  - Muscle contracture [Unknown]
  - Asthenia [Unknown]
  - Respiratory distress [Unknown]
  - Immobile [Unknown]
  - Decubitus ulcer [Unknown]
